FAERS Safety Report 26098941 (Version 1)
Quarter: 2025Q4

REPORT INFORMATION
  Report Type: Spontaneous
  Country: GB (occurrence: None)
  Receive Date: 20251127
  Receipt Date: 20251127
  Transmission Date: 20260118
  Serious: Yes (Other)
  Sender: Alvotech
  Company Number: None

PATIENT
  Sex: Female

DRUGS (12)
  1. USTEKINUMAB [Suspect]
     Active Substance: USTEKINUMAB
     Indication: Irritable bowel syndrome
     Dates: start: 20250307, end: 20251027
  2. LOPERAMIDE [Concomitant]
     Active Substance: LOPERAMIDE
     Indication: Irritable bowel syndrome
  3. BUTYLSCOPOLAMINE BROMIDE [Concomitant]
     Active Substance: BUTYLSCOPOLAMINE BROMIDE
     Indication: Irritable bowel syndrome
  4. PEPPERMINT OIL [Concomitant]
     Active Substance: PEPPERMINT OIL
     Indication: Irritable bowel syndrome
  5. AMITRIPTYLINE [Concomitant]
     Active Substance: AMITRIPTYLINE
     Indication: Irritable bowel syndrome
  6. LAMOTRIGINE [Concomitant]
     Active Substance: LAMOTRIGINE
     Indication: Temporal lobe epilepsy
  7. LEVETIRACETAM [Concomitant]
     Active Substance: LEVETIRACETAM
     Indication: Temporal lobe epilepsy
  8. CYANOCOBALAMIN [Concomitant]
     Active Substance: CYANOCOBALAMIN
     Indication: Anaemia
  9. OXYBUTYNIN [Concomitant]
     Active Substance: OXYBUTYNIN
     Indication: Hot flush
  10. ALVERINE [Concomitant]
     Active Substance: ALVERINE
     Indication: Irritable bowel syndrome
  11. VAGIFEM [Concomitant]
     Active Substance: ESTRADIOL
     Indication: Menopause
  12. ATOGEPANT [Concomitant]
     Active Substance: ATOGEPANT
     Indication: Temporal lobe epilepsy

REACTIONS (4)
  - Musculoskeletal stiffness [Unknown]
  - Back pain [Unknown]
  - Fatigue [Unknown]
  - Productive cough [Unknown]
